FAERS Safety Report 12874694 (Version 1)
Quarter: 2016Q4

REPORT INFORMATION
  Report Type: Spontaneous
  Country: US (occurrence: US)
  Receive Date: 20161021
  Receipt Date: 20161021
  Transmission Date: 20170207
  Serious: Yes (Other)
  Sender: FDA-Public Use
  Company Number: US-ASTRAZENECA-2016SF09132

PATIENT
  Age: 61 Year
  Sex: Male
  Weight: 99.2 kg

DRUGS (6)
  1. OMEPRAZOLE. [Suspect]
     Active Substance: OMEPRAZOLE
     Route: 048
  2. ATORVASTATIN [Concomitant]
     Active Substance: ATORVASTATIN
     Route: 048
  3. CLARITIN-D 12 HOUR [Concomitant]
     Active Substance: LORATADINE\PSEUDOEPHEDRINE SULFATE
     Dosage: 1 TABLET TWICE A DAY
     Route: 048
  4. HYDROCHLOROTHIAZIDE. [Concomitant]
     Active Substance: HYDROCHLOROTHIAZIDE
     Route: 048
  5. TOPROL XL [Suspect]
     Active Substance: METOPROLOL SUCCINATE
     Route: 048
  6. VIAGRA [Suspect]
     Active Substance: SILDENAFIL CITRATE
     Route: 048

REACTIONS (8)
  - Rash [Unknown]
  - Osteoarthritis [Unknown]
  - Anaemia [Unknown]
  - Type 2 diabetes mellitus [Unknown]
  - Duodenal ulcer perforation [Unknown]
  - Gastrointestinal haemorrhage [Unknown]
  - Chronic kidney disease [Unknown]
  - Large intestine polyp [Unknown]
